FAERS Safety Report 5427092-5 (Version None)
Quarter: 2007Q3

REPORT INFORMATION
  Report Type: 
  Country: None (occurrence: None)
  Receive Date: 20070824
  Receipt Date: 20070824
  Transmission Date: 20080115
  Serious: Yes (Hospitalization)
  Sender: FDA-Public Use
  Company Number: None

PATIENT
  Age: 18 Year
  Sex: Male

DRUGS (5)
  1. ACETAMINOPHEN [Suspect]
     Indication: SUICIDE ATTEMPT
     Dosage: 70GM PO X 1
     Route: 048
     Dates: start: 20070409
  2. LEXAPRO [Concomitant]
  3. IBUPROFEN [Concomitant]
  4. ASPIRIN [Concomitant]
  5. ETOH [Concomitant]

REACTIONS (3)
  - ALCOHOL POISONING [None]
  - INCORRECT DOSE ADMINISTERED [None]
  - SUICIDE ATTEMPT [None]
